FAERS Safety Report 10468482 (Version 1)
Quarter: 2014Q3

REPORT INFORMATION
  Report Type: Spontaneous
  Country: US (occurrence: US)
  Receive Date: 20140922
  Receipt Date: 20140922
  Transmission Date: 20150326
  Serious: No
  Sender: FDA-Public Use
  Company Number: US-ALLERGAN-1311771US

PATIENT
  Age: 60 Year
  Sex: Female
  Weight: 62.59 kg

DRUGS (1)
  1. LASTACAFT [Suspect]
     Active Substance: ALCAFTADINE
     Indication: EYE ALLERGY
     Dosage: UNK UNK, QD
     Route: 047

REACTIONS (4)
  - Periorbital oedema [Not Recovered/Not Resolved]
  - Eye pruritus [Not Recovered/Not Resolved]
  - Eyelid oedema [Not Recovered/Not Resolved]
  - Eye pain [Not Recovered/Not Resolved]

NARRATIVE: CASE EVENT DATE: 20130804
